FAERS Safety Report 6632534-3 (Version None)
Quarter: 2010Q1

REPORT INFORMATION
  Report Type: 
  Country: None (occurrence: None)
  Receive Date: 20100312
  Receipt Date: 20100223
  Transmission Date: 20100710
  Serious: No
  Sender: FDA-Public Use
  Company Number: US-BIOGENIDEC-2010BI006090

PATIENT
  Age: 44 Year
  Sex: Female

DRUGS (4)
  1. AVONEX [Suspect]
     Indication: MULTIPLE SCLEROSIS
     Route: 030
     Dates: start: 20091101
  2. VALIUM [Concomitant]
     Indication: ANXIETY
     Route: 048
  3. NAPROXEN [Concomitant]
     Indication: LYMPHADENITIS
     Route: 048
  4. NASONEX [Concomitant]
     Indication: PARANASAL SINUS HYPERSECRETION
     Route: 048

REACTIONS (11)
  - CONSTIPATION [None]
  - DECREASED APPETITE [None]
  - FATIGUE [None]
  - HYPOAESTHESIA [None]
  - HYPOAESTHESIA FACIAL [None]
  - MOBILITY DECREASED [None]
  - MUSCLE SPASMS [None]
  - PANIC REACTION [None]
  - TRANSIENT ISCHAEMIC ATTACK [None]
  - TREMOR [None]
  - WEIGHT DECREASED [None]
